FAERS Safety Report 12699601 (Version 2)
Quarter: 2016Q4

REPORT INFORMATION
  Report Type: Spontaneous
  Country: JP (occurrence: JP)
  Receive Date: 20160830
  Receipt Date: 20161206
  Transmission Date: 20170207
  Serious: Yes (Death, Other)
  Sender: FDA-Public Use
  Company Number: JP-BAYER-2016-164740

PATIENT
  Age: 69 Year
  Sex: Male
  Weight: 64 kg

DRUGS (6)
  1. LOXOPROFEN [Concomitant]
     Active Substance: LOXOPROFEN
     Dosage: DAILY DOSE 240 MG
     Route: 048
     Dates: start: 20160713
  2. NEXIUM [Concomitant]
     Active Substance: ESOMEPRAZOLE MAGNESIUM
     Dosage: DAILY DOSE 20 MG
     Route: 048
     Dates: start: 20160713
  3. NEXAVAR [Suspect]
     Active Substance: SORAFENIB
     Indication: HEPATOCELLULAR CARCINOMA
     Dosage: 400 MG, BID
     Route: 048
     Dates: start: 20160525, end: 2016
  4. NEXAVAR [Suspect]
     Active Substance: SORAFENIB
     Indication: HEPATOCELLULAR CARCINOMA
     Dosage: 400 MG
     Route: 048
     Dates: start: 20160727, end: 20160812
  5. LYRICA [Concomitant]
     Active Substance: PREGABALIN
     Dosage: DAILY DOSE 150 MG
     Route: 048
     Dates: start: 20160629
  6. TRAMACET [PARACETAMOL,TRAMADOL HYDROCHLORIDE] [Concomitant]
     Dosage: DAILY DOSE 4 DF
     Route: 048
     Dates: start: 20160713

REACTIONS (4)
  - Ascites [None]
  - Infection [Recovering/Resolving]
  - Hepatic cancer [Fatal]
  - Hepatic function abnormal [Recovering/Resolving]

NARRATIVE: CASE EVENT DATE: 201608
